FAERS Safety Report 8104557-9 (Version None)
Quarter: 2012Q1

REPORT INFORMATION
  Report Type: 
  Country: None (occurrence: None)
  Receive Date: 20120130
  Receipt Date: 20120126
  Transmission Date: 20120608
  Serious: Yes (Life-Threatening)
  Sender: FDA-Public Use
  Company Number: PHHY2012FR007037

PATIENT
  Age: 58 Year
  Sex: Male

DRUGS (6)
  1. SIMULECT [Suspect]
     Indication: LIVER TRANSPLANT
     Dates: start: 20120125
  2. IMIPENEM AND CILASTATIN SODIUM [Concomitant]
     Indication: LIVER TRANSPLANT
  3. CORTICOSTEROIDS [Concomitant]
     Indication: LIVER TRANSPLANT
  4. MIDAZOLAM HCL [Concomitant]
     Indication: LIVER TRANSPLANT
  5. ZOVIRAX [Concomitant]
     Indication: LIVER TRANSPLANT
  6. MYCOPHENOLATE MOFETIL (CELLCEPT) [Concomitant]
     Indication: LIVER TRANSPLANT

REACTIONS (1)
  - INTRAVASCULAR HAEMOLYSIS [None]
